FAERS Safety Report 9306107 (Version 2)
Quarter: 2013Q3

REPORT INFORMATION
  Report Type: Spontaneous
  Country: HR (occurrence: HR)
  Receive Date: 20130523
  Receipt Date: 20130715
  Transmission Date: 20140515
  Serious: Yes (Hospitalization, Other)
  Sender: FDA-Public Use
  Company Number: HR-ELI_LILLY_AND_COMPANY-HR201305004199

PATIENT
  Age: 60 Year
  Sex: Female

DRUGS (6)
  1. ZYPADHERA [Suspect]
     Indication: SCHIZOPHRENIA
     Dosage: 300 MG, UNKNOWN
     Route: 030
     Dates: start: 20130513
  2. ZYPREXA VELOTAB [Suspect]
     Dosage: 15 MG, UNKNOWN
     Dates: start: 20130423
  3. ZYPREXA VELOTAB [Suspect]
     Dosage: 10 MG, QD
     Route: 065
  4. AKINETON                           /00079501/ [Concomitant]
     Dosage: 4 MG, QD
     Route: 065
  5. HALDOL DEPOT [Concomitant]
     Dosage: 50 MG, UNKNOWN
     Route: 065
     Dates: start: 20130414
  6. EGLONYL [Concomitant]
     Dosage: 50 MG, UNKNOWN (FOUR DAYS)
     Route: 065

REACTIONS (11)
  - Catatonia [Recovered/Resolved]
  - Somatoform disorder [Recovered/Resolved]
  - Anxiety [Unknown]
  - Agitation [Unknown]
  - Aggression [Unknown]
  - Stupor [Recovered/Resolved]
  - Extrapyramidal disorder [Unknown]
  - Neuroleptic malignant syndrome [Unknown]
  - Somnolence [Unknown]
  - Confusional state [Recovered/Resolved]
  - Sedation [Recovered/Resolved]
